FAERS Safety Report 24930042 (Version 1)
Quarter: 2025Q1

REPORT INFORMATION
  Report Type: Spontaneous
  Country: US (occurrence: US)
  Receive Date: 20250205
  Receipt Date: 20250205
  Transmission Date: 20250408
  Serious: No
  Sender: BIOGEN
  Company Number: US-BIOGEN-2025BI01299265

PATIENT
  Sex: Female

DRUGS (2)
  1. TECFIDERA [Suspect]
     Active Substance: DIMETHYL FUMARATE
     Indication: Product used for unknown indication
     Route: 050
  2. COPAXONE [Concomitant]
     Active Substance: GLATIRAMER ACETATE
     Route: 050
     Dates: start: 201407

REACTIONS (5)
  - Asthenia [Unknown]
  - Paraesthesia [Unknown]
  - Muscle spasms [Unknown]
  - Amnesia [Unknown]
  - Injection site reaction [Unknown]

NARRATIVE: CASE EVENT DATE: 20190101
